FAERS Safety Report 7410155-2 (Version None)
Quarter: 2011Q2

REPORT INFORMATION
  Report Type: 
  Country: None (occurrence: None)
  Receive Date: 20110412
  Receipt Date: 20110406
  Transmission Date: 20111010
  Serious: Yes (Hospitalization)
  Sender: FDA-Public Use
  Company Number: NL-MEDIMMUNE-MEDI-0012448

PATIENT
  Sex: Male
  Weight: 4.41 kg

DRUGS (10)
  1. RETINOL [Concomitant]
  2. TOCOPHEROL CONCENTRATE CAP [Concomitant]
  3. AMOXICILLIN [Concomitant]
  4. MACROGOL [Concomitant]
  5. VITAMIN-B-COMPLEX STANDARD [Concomitant]
  6. SYNAGIS [Suspect]
     Dates: start: 20110308, end: 20110308
  7. SYNAGIS [Suspect]
     Route: 030
     Dates: start: 20101214, end: 20110111
  8. SYNAGIS [Suspect]
     Route: 030
     Dates: start: 20110406, end: 20110406
  9. PANCREATIN [Concomitant]
  10. PHYTONADIONE [Concomitant]

REACTIONS (4)
  - DYSPNOEA [None]
  - INFLUENZA [None]
  - VOMITING [None]
  - DECREASED APPETITE [None]
